FAERS Safety Report 26085311 (Version 1)
Quarter: 2025Q4

REPORT INFORMATION
  Report Type: Spontaneous
  Country: US (occurrence: None)
  Receive Date: 20251125
  Receipt Date: 20251125
  Transmission Date: 20260118
  Serious: Yes (Life-Threatening, Hospitalization, Other)
  Sender: APOTEX
  Company Number: US-APOTEX-2025AP032843

PATIENT
  Age: 59 Year
  Sex: Female

DRUGS (3)
  1. ACETAMINOPHEN [Suspect]
     Active Substance: ACETAMINOPHEN
     Indication: Product used for unknown indication
     Dosage: UNK
     Route: 065
  2. ACETAMINOPHEN [Suspect]
     Active Substance: ACETAMINOPHEN
     Dosage: 162500 MILLIGRAM
     Route: 065
  3. NAPROXEN [Suspect]
     Active Substance: NAPROXEN
     Indication: Thoracic spinal stenosis
     Dosage: UNK, QD
     Route: 065

REACTIONS (6)
  - Gastric ulcer haemorrhage [Recovering/Resolving]
  - Gastric ulcer [Recovering/Resolving]
  - Intentional overdose [Unknown]
  - Depressed level of consciousness [Recovering/Resolving]
  - Duodenal ulcer [Recovering/Resolving]
  - Fistula of small intestine [Recovering/Resolving]
